FAERS Safety Report 22532882 (Version 1)
Quarter: 2023Q2

REPORT INFORMATION
  Report Type: Spontaneous
  Country: PL (occurrence: PL)
  Receive Date: 20230607
  Receipt Date: 20230607
  Transmission Date: 20230722
  Serious: Yes (Other)
  Sender: FDA-Public Use
  Company Number: PL-002147023-PHHY2019PL167082

PATIENT
  Age: 54 Year
  Sex: Female

DRUGS (6)
  1. BUDESONIDE [Interacting]
     Active Substance: BUDESONIDE
     Indication: Autoimmune hepatitis
     Dosage: 75 MG, Q24H
     Route: 065
     Dates: start: 2011
  2. DASABUVIR [Interacting]
     Active Substance: DASABUVIR
     Indication: Acute hepatitis C
     Dosage: 500 MG, QD (DIVIDED INTO 2 DOSES)
     Route: 065
  3. OMBITASVIR [Interacting]
     Active Substance: OMBITASVIR
     Indication: Product used for unknown indication
     Dosage: 25 MG/DL, QD
     Route: 065
  4. OMBITASVIR [Interacting]
     Active Substance: OMBITASVIR
     Dosage: 150 MG/DL, QD
     Route: 065
  5. OMBITASVIR [Interacting]
     Active Substance: OMBITASVIR
     Dosage: 100 MG/DL, QD
     Route: 065
  6. AZATHIOPRINE [Concomitant]
     Active Substance: AZATHIOPRINE
     Indication: Autoimmune hepatitis
     Dosage: 25 MG, QD
     Route: 065
     Dates: start: 2011

REACTIONS (3)
  - Cushing^s syndrome [Recovered/Resolved]
  - Drug interaction [Recovered/Resolved]
  - Off label use [Recovered/Resolved]
